FAERS Safety Report 10230427 (Version 1)
Quarter: 2014Q2

REPORT INFORMATION
  Report Type: Spontaneous
  Country: US (occurrence: None)
  Receive Date: 20140610
  Receipt Date: 20140610
  Transmission Date: 20141212
  Serious: Yes (Other)
  Sender: FDA-Public Use
  Company Number: None

PATIENT
  Age: 3 Month
  Sex: Female
  Weight: 5.7 kg

DRUGS (1)
  1. HEPARIN [Suspect]
     Indication: SURGERY
     Dosage: 1750 UNITS (307 UNITS/KG) ONCE INTRAVENOUS
     Route: 042
     Dates: start: 20140605, end: 20140605

REACTIONS (2)
  - Product quality issue [None]
  - Drug ineffective [None]
